FAERS Safety Report 5043916-8 (Version None)
Quarter: 2006Q2

REPORT INFORMATION
  Report Type: 
  Country: None (occurrence: None)
  Receive Date: 20060601
  Receipt Date: 20060120
  Transmission Date: 20061013
  Serious: No
  Sender: FDA-Public Use
  Company Number: 2006PV007422

PATIENT
  Age: 61 Year
  Sex: Male
  Weight: 99.7913 kg

DRUGS (5)
  1. BYETTA [Suspect]
     Indication: DIABETES MELLITUS NON-INSULIN-DEPENDENT
     Dosage: 5 MCG; BID; SC
     Route: 058
     Dates: start: 20060112
  2. METFORMIN [Concomitant]
  3. ACTOS [Concomitant]
  4. GLYBURIDE [Concomitant]
  5. COZAAR [Concomitant]

REACTIONS (6)
  - BLOOD PRESSURE INCREASED [None]
  - DRUG EFFECT DECREASED [None]
  - FLUSHING [None]
  - HEADACHE [None]
  - INFREQUENT BOWEL MOVEMENTS [None]
  - NAUSEA [None]
